FAERS Safety Report 4464146-4 (Version None)
Quarter: 2004Q3

REPORT INFORMATION
  Report Type: 
  Country: None (occurrence: None)
  Receive Date: 20040929
  Receipt Date: 20040929
  Transmission Date: 20050211
  Serious: Yes (Other)
  Sender: FDA-Public Use
  Company Number: None

PATIENT
  Age: 61 Year
  Sex: Female

DRUGS (3)
  1. LORAZEPAM [Suspect]
     Indication: FIBROMYALGIA
     Dosage: ONE  PER NIGHT  ORAL
     Route: 048
     Dates: start: 20020101, end: 20040928
  2. SYNTHROID [Concomitant]
  3. PROTONEX [Concomitant]

REACTIONS (3)
  - PHARMACEUTICAL PRODUCT COMPLAINT [None]
  - PSYCHOMOTOR HYPERACTIVITY [None]
  - THERAPEUTIC RESPONSE UNEXPECTED [None]
